FAERS Safety Report 21916588 (Version 1)
Quarter: 2023Q1

REPORT INFORMATION
  Report Type: Spontaneous
  Country: US (occurrence: None)
  Receive Date: 20230125
  Receipt Date: 20230125
  Transmission Date: 20230417
  Serious: Yes (Hospitalization)
  Sender: FDA-Public Use
  Company Number: None

PATIENT
  Sex: Female

DRUGS (5)
  1. SPRAVATO [Suspect]
     Active Substance: ESKETAMINE
     Indication: Major depression
     Dosage: FREQUENCY : TWICE A WEEK;?
     Route: 045
     Dates: start: 20211201
  2. ATORVASTATIN [Concomitant]
     Active Substance: ATORVASTATIN
  3. BUPROPN HCL XL [Concomitant]
  4. ESCITALOPRAM [Concomitant]
     Active Substance: ESCITALOPRAM OXALATE
  5. MONTELUKAST [Concomitant]
     Active Substance: MONTELUKAST SODIUM

REACTIONS (2)
  - Cerebral haemorrhage [None]
  - Product quality issue [None]
